FAERS Safety Report 7635465 (Version 4)
Quarter: 2013Q2

REPORT INFORMATION
  Report Type: Report from Study
  Country: JP (occurrence: JP)
  Receive Date: 20101020
  Receipt Date: 20130613
  Transmission Date: 20140414
  Serious: Yes (Other)
  Sender: FDA-Public Use
  Company Number: PHHY2010JP67152

PATIENT
  Age: 45 Year
  Sex: Male
  Weight: 78 kg

DRUGS (10)
  1. AFINITOR [Suspect]
     Indication: METASTATIC RENAL CELL CARCINOMA
     Dosage: 10 MG, DAILY
     Route: 048
     Dates: start: 20100512, end: 20100602
  2. AFINITOR [Suspect]
     Dosage: 5 MG, DAILY
     Route: 048
     Dates: start: 20100603
  3. ZOMETA [Suspect]
     Indication: METASTASES TO BONE
     Dosage: 4 MG PER ADMINISTRATION
     Route: 042
     Dates: start: 20090114, end: 20100729
  4. OXYCONTIN [Suspect]
     Indication: PAIN
     Dosage: 15 MG, DAILY
     Route: 048
     Dates: start: 20100908
  5. INTERFERON ALFA [Concomitant]
     Indication: METASTATIC RENAL CELL CARCINOMA
     Dosage: 3000000 IU, UNK
     Route: 048
     Dates: start: 200502, end: 20080601
  6. SUNITINIB MALATE [Concomitant]
     Indication: METASTATIC RENAL CELL CARCINOMA
     Dosage: 50 MG, UNK
     Route: 048
     Dates: start: 20090803, end: 20100511
  7. SORAFENIB TOSILATE [Concomitant]
     Indication: METASTATIC RENAL CELL CARCINOMA
     Dosage: 800 MG, UNK
     Route: 048
     Dates: start: 20080602, end: 20090802
  8. BLOPRESS [Concomitant]
     Dosage: 8 MG, UNK
     Route: 048
     Dates: start: 20090216
  9. MEVALOTIN [Concomitant]
     Dosage: 10 MG, UNK
     Route: 048
     Dates: start: 20100825
  10. NOVAMIN [Concomitant]
     Dosage: 15 MG, UNK
     Route: 048
     Dates: start: 20100908

REACTIONS (2)
  - Liver disorder [Recovered/Resolved]
  - Osteomyelitis [Recovering/Resolving]
